FAERS Safety Report 9190062 (Version 1)
Quarter: 2013Q1

REPORT INFORMATION
  Report Type: Spontaneous
  Country: FR (occurrence: None)
  Receive Date: 20130322
  Receipt Date: 20130322
  Transmission Date: 20140127
  Serious: Yes (Other)
  Sender: FDA-Public Use
  Company Number: 1630775

PATIENT
  Age: 51 Year
  Sex: Female

DRUGS (5)
  1. CARBOPLATIN [Suspect]
     Indication: CHEMOTHERAPY
     Route: 042
     Dates: end: 20111117
  2. (TAXOL) [Concomitant]
  3. (METHYLPREDNISOLONE) [Concomitant]
  4. (AZANTAC) [Concomitant]
  5. (POLARAMINE) [Concomitant]

REACTIONS (4)
  - Dysaesthesia pharynx [None]
  - Abdominal discomfort [None]
  - Hypersensitivity [None]
  - Rash [None]
